FAERS Safety Report 4657638-6 (Version None)
Quarter: 2005Q2

REPORT INFORMATION
  Report Type: 
  Country: None (occurrence: None)
  Receive Date: 20050510
  Receipt Date: 20050503
  Transmission Date: 20051028
  Serious: Yes (Other)
  Sender: FDA-Public Use
  Company Number: 200514010GDDC

PATIENT
  Age: 78 Year
  Sex: Female

DRUGS (7)
  1. ENOXAPARIN SODIUM [Suspect]
     Indication: THROMBOSIS PROPHYLAXIS
     Route: 058
     Dates: start: 20050228, end: 20050303
  2. ILOPROST [Suspect]
     Indication: ULCER
     Dosage: DOSE: UP TO 48UG/DAY
     Route: 042
     Dates: start: 20050224, end: 20050228
  3. ASPIRIN [Concomitant]
     Route: 048
  4. MORPHINE [Concomitant]
     Route: 048
  5. ACETAMINOPHEN [Concomitant]
     Route: 048
  6. PENTOXIFYLLINE [Concomitant]
     Route: 048
  7. ALLOPURINOL [Concomitant]
     Route: 048

REACTIONS (2)
  - NEUTROPHIL COUNT DECREASED [None]
  - PLATELET COUNT DECREASED [None]
